FAERS Safety Report 4407346-1 (Version None)
Quarter: 2004Q3

REPORT INFORMATION
  Report Type: 
  Country: None (occurrence: None)
  Receive Date: 20040721
  Receipt Date: 20040702
  Transmission Date: 20050211
  Serious: Yes (Death, Other)
  Sender: FDA-Public Use
  Company Number: USA040771756

PATIENT
  Age: 73 Year
  Sex: Male

DRUGS (4)
  1. ZYPREXA [Suspect]
     Indication: DEMENTIA ALZHEIMER'S TYPE
     Dosage: 5 MG / 3 DAY
  2. NEXIUM [Concomitant]
  3. BLOOD PRESSURE [Concomitant]
  4. ASPIRIN [Concomitant]

REACTIONS (1)
  - BONE NEOPLASM MALIGNANT [None]
